FAERS Safety Report 15781153 (Version 3)
Quarter: 2019Q1

REPORT INFORMATION
  Report Type: Spontaneous
  Country: US (occurrence: US)
  Receive Date: 20190102
  Receipt Date: 20190218
  Transmission Date: 20190417
  Serious: Yes (Hospitalization, Other)
  Sender: FDA-Public Use
  Company Number: US-SA-2018SA394037

PATIENT
  Age: 63 Year
  Sex: Male

DRUGS (1)
  1. LANTUS [Suspect]
     Active Substance: INSULIN GLARGINE
     Dosage: 35 U, QD
     Route: 065
     Dates: start: 201812

REACTIONS (4)
  - Pancreatic disorder [Unknown]
  - Catatonia [Unknown]
  - Blood glucose decreased [Unknown]
  - Hypoglycaemic coma [Unknown]
